FAERS Safety Report 22105722 (Version 3)
Quarter: 2023Q2

REPORT INFORMATION
  Report Type: Spontaneous
  Country: FR (occurrence: FR)
  Receive Date: 20230317
  Receipt Date: 20230524
  Transmission Date: 20230722
  Serious: Yes (Hospitalization, Other)
  Sender: FDA-Public Use
  Company Number: FR-AUROBINDO-AUR-APL-2023-011558

PATIENT
  Age: 11 Year
  Sex: Male

DRUGS (19)
  1. ARIPIPRAZOLE [Suspect]
     Active Substance: ARIPIPRAZOLE
     Indication: Psychotic disorder
     Dosage: 2.5 MILLIGRAM, ONCE A DAY
     Route: 065
  2. CLOZAPINE [Suspect]
     Active Substance: CLOZAPINE
     Indication: Psychotic disorder
     Dosage: 200 MILLIGRAM, ONCE A DAY
     Route: 065
  3. CLOZAPINE [Suspect]
     Active Substance: CLOZAPINE
     Dosage: 25 MILLIGRAM, ONCE A DAY
     Route: 065
  4. CLOZAPINE [Suspect]
     Active Substance: CLOZAPINE
     Dosage: UNK,25 MG EVERY 3 DAYS
     Route: 065
  5. FLUOXETINE [Suspect]
     Active Substance: FLUOXETINE HYDROCHLORIDE
     Indication: Tourette^s disorder
     Dosage: UNK
     Route: 065
  6. FLUOXETINE [Suspect]
     Active Substance: FLUOXETINE HYDROCHLORIDE
     Indication: Schizophrenia
  7. FLUOXETINE [Suspect]
     Active Substance: FLUOXETINE HYDROCHLORIDE
     Indication: Hallucination
  8. FLUOXETINE [Suspect]
     Active Substance: FLUOXETINE HYDROCHLORIDE
     Indication: Autism spectrum disorder
  9. RISPERIDONE [Suspect]
     Active Substance: RISPERIDONE
     Indication: Tourette^s disorder
     Dosage: UNK
     Route: 065
  10. RISPERIDONE [Suspect]
     Active Substance: RISPERIDONE
     Indication: Schizophrenia
  11. RISPERIDONE [Suspect]
     Active Substance: RISPERIDONE
     Indication: Autism spectrum disorder
  12. RISPERIDONE [Suspect]
     Active Substance: RISPERIDONE
     Indication: Hallucination
  13. FLUVOXAMINE [Suspect]
     Active Substance: FLUVOXAMINE
     Indication: Product used for unknown indication
     Dosage: STARTING AT 25?50 MG/DAY
     Route: 065
  14. LORAZEPAM [Suspect]
     Active Substance: LORAZEPAM
     Indication: Product used for unknown indication
     Dosage: 13.5 MILLIGRAM, ONCE A DAY
     Route: 065
  15. LORAZEPAM [Suspect]
     Active Substance: LORAZEPAM
     Dosage: 16.5 MILLIGRAM, ONCE A DAY
     Route: 065
  16. PRAZOSIN HYDROCHLORIDE [Concomitant]
     Active Substance: PRAZOSIN HYDROCHLORIDE
     Indication: Post-traumatic epilepsy
     Dosage: UNK
     Route: 065
  17. PRAZOSIN HYDROCHLORIDE [Concomitant]
     Active Substance: PRAZOSIN HYDROCHLORIDE
     Indication: Nightmare
  18. PRAZOSIN HYDROCHLORIDE [Concomitant]
     Active Substance: PRAZOSIN HYDROCHLORIDE
     Indication: Sleep disorder
  19. NEFOPAM [Concomitant]
     Active Substance: NEFOPAM
     Indication: Product used for unknown indication
     Dosage: UNK
     Route: 065

REACTIONS (6)
  - Drug resistance [Unknown]
  - No adverse event [Unknown]
  - Potentiating drug interaction [Unknown]
  - Drug ineffective [Unknown]
  - Intentional product use issue [Unknown]
  - Off label use [Unknown]
